FAERS Safety Report 15661047 (Version 1)
Quarter: 2018Q4

REPORT INFORMATION
  Report Type: Spontaneous
  Country: US (occurrence: US)
  Receive Date: 20181127
  Receipt Date: 20181127
  Transmission Date: 20190205
  Serious: Yes (Other)
  Sender: FDA-Public Use
  Company Number: US-SCA PHARMACEUTICALS-2018SCA00015

PATIENT
  Sex: Female

DRUGS (1)
  1. OXYTOCIN IN 0.9% SODIUM CHLORIDE [Suspect]
     Active Substance: OXYTOCIN

REACTIONS (1)
  - Haemorrhage [Unknown]
